FAERS Safety Report 11839377 (Version 1)
Quarter: 2015Q4

REPORT INFORMATION
  Report Type: Spontaneous
  Country: US (occurrence: US)
  Receive Date: 20151216
  Receipt Date: 20151216
  Transmission Date: 20160305
  Serious: Yes (Other)
  Sender: FDA-Public Use
  Company Number: US-DRREDDYS-USA/USA/15/0054625

PATIENT
  Age: 74 Year
  Sex: Female
  Weight: 90.72 kg

DRUGS (2)
  1. CLODERM [Suspect]
     Active Substance: CLOCORTOLONE PIVALATE
     Indication: EYELID SKIN DRYNESS
     Route: 061
  2. CLODERM [Suspect]
     Active Substance: CLOCORTOLONE PIVALATE
     Indication: EYELIDS PRURITUS

REACTIONS (1)
  - Eye haemorrhage [Recovered/Resolved]
